FAERS Safety Report 4444230-1 (Version None)
Quarter: 2004Q3

REPORT INFORMATION
  Report Type: 
  Country: None (occurrence: None)
  Receive Date: 20040902
  Receipt Date: 20040823
  Transmission Date: 20050211
  Serious: Yes (Hospitalization)
  Sender: FDA-Public Use
  Company Number: SUSI-2004-00511

PATIENT
  Sex: Female

DRUGS (4)
  1. CARBATROL [Suspect]
     Dates: start: 20040101
  2. DEPAKOTE [Suspect]
     Dates: start: 20040101, end: 20040101
  3. TOPAMAX [Suspect]
     Dates: start: 20040101, end: 20040701
  4. TEGRETOL [Concomitant]

REACTIONS (2)
  - ALOPECIA [None]
  - DRUG INTOLERANCE [None]
